FAERS Safety Report 8885854 (Version 2)
Quarter: 2012Q4

REPORT INFORMATION
  Report Type: 
  Country: CA (occurrence: CA)
  Receive Date: 20121101
  Receipt Date: 20121106
  Transmission Date: 20130627
  Serious: Yes (Hospitalization, Other)
  Sender: FDA-Public Use
  Company Number: PHHY2008CA03953

PATIENT
  Age: 60 Year
  Sex: Female

DRUGS (10)
  1. SANDOSTATIN LAR [Suspect]
     Indication: CARCINOID TUMOUR
     Dosage: 30 mg, every 4 weeks
     Route: 030
     Dates: start: 20080131
  2. CYMBALTA [Concomitant]
     Indication: DEPRESSION
     Dosage: 60 mg, QD
  3. CYTOMEL [Concomitant]
     Indication: THYROID DISORDER
  4. HYDROCHLOROTHIAZIDE [Concomitant]
     Indication: BLOOD PRESSURE
  5. RAMIPRIL [Concomitant]
     Indication: BLOOD POTASSIUM ABNORMAL
  6. PREVACID [Concomitant]
     Indication: REFLUX GASTRITIS
  7. POTASSIUM [Concomitant]
  8. OMEGA [Concomitant]
  9. MAGNESIUM [Concomitant]
  10. DULOXETINE [Concomitant]
     Dosage: 60 mg, QD

REACTIONS (10)
  - Hepatic cancer [Unknown]
  - Hyperhidrosis [Not Recovered/Not Resolved]
  - Palpitations [Not Recovered/Not Resolved]
  - Wheezing [Unknown]
  - Pain [Unknown]
  - Hot flush [Unknown]
  - Dyspnoea [Not Recovered/Not Resolved]
  - Fatigue [Not Recovered/Not Resolved]
  - Injection site pain [Not Recovered/Not Resolved]
  - Diarrhoea [Unknown]
